FAERS Safety Report 8761886 (Version 1)
Quarter: 2012Q4

REPORT INFORMATION
  Report Type: 
  Country: US (occurrence: US)
  Receive Date: 20120830
  Receipt Date: 20120830
  Transmission Date: 20130627
  Serious: Yes (Other)
  Sender: FDA-Public Use
  Company Number: US-PFIZER INC-2012210369

PATIENT
  Age: 61 Year
  Sex: Female
  Weight: 114 kg

DRUGS (3)
  1. GEODON [Suspect]
     Indication: SLEEP DISORDER
     Dosage: 20 mg, 2x/day
     Route: 048
  2. GEODON [Suspect]
     Indication: HALLUCINATION
     Dosage: 40 mg, 2x/day
     Route: 048
     Dates: end: 2011
  3. ZOLOFT [Concomitant]
     Dosage: UNK

REACTIONS (10)
  - Ankle fracture [Not Recovered/Not Resolved]
  - Upper limb fracture [Not Recovered/Not Resolved]
  - Fall [Not Recovered/Not Resolved]
  - Speech disorder [Not Recovered/Not Resolved]
  - Clumsiness [Not Recovered/Not Resolved]
  - Head titubation [Not Recovered/Not Resolved]
  - Tremor [Not Recovered/Not Resolved]
  - Memory impairment [Not Recovered/Not Resolved]
  - Arthropathy [Not Recovered/Not Resolved]
  - Off label use [Unknown]
